FAERS Safety Report 7167861-7 (Version None)
Quarter: 2010Q4

REPORT INFORMATION
  Report Type: 
  Country: None (occurrence: None)
  Receive Date: 20101216
  Receipt Date: 20100628
  Transmission Date: 20110411
  Serious: No
  Sender: FDA-Public Use
  Company Number: US-TYCO HEALTHCARE/MALLINCKRODT-T201001416

PATIENT
  Sex: Female
  Weight: 54.422 kg

DRUGS (1)
  1. OXYCODONE HCL AND ACETAMINOPHEN [Suspect]
     Indication: BACK PAIN
     Dosage: 1-2 TABLETS Q 4-6 HRS
     Dates: start: 20100604

REACTIONS (1)
  - DYSPHONIA [None]
